FAERS Safety Report 17581465 (Version 1)
Quarter: 2020Q1

REPORT INFORMATION
  Report Type: Report from Study
  Country: US (occurrence: US)
  Receive Date: 20200325
  Receipt Date: 20200325
  Transmission Date: 20200409
  Serious: Yes (Death, Hospitalization, Other)
  Sender: FDA-Public Use
  Company Number: US-EISAI MEDICAL RESEARCH-EC-2020-072050

PATIENT
  Age: 62 Year
  Sex: Female
  Weight: 107.9 kg

DRUGS (1)
  1. LENVIMA [Suspect]
     Active Substance: LENVATINIB
     Indication: HEPATIC CANCER
     Route: 048
     Dates: start: 20200115, end: 2020

REACTIONS (9)
  - Abdominal pain upper [Unknown]
  - Asthenia [Unknown]
  - Coma [Unknown]
  - Anaemia [Unknown]
  - Vomiting [Unknown]
  - Malignant neoplasm progression [Unknown]
  - Death [Fatal]
  - Diarrhoea [Unknown]
  - Dehydration [Unknown]

NARRATIVE: CASE EVENT DATE: 2020
